FAERS Safety Report 18817092 (Version 1)
Quarter: 2021Q1

REPORT INFORMATION
  Report Type: Spontaneous
  Country: US (occurrence: US)
  Receive Date: 20210201
  Receipt Date: 20210201
  Transmission Date: 20210419
  Serious: No
  Sender: FDA-Public Use
  Company Number: US-BAYER-2021-039239

PATIENT
  Age: 29 Year
  Sex: Female
  Weight: 66 kg

DRUGS (5)
  1. BACTERIOSTATIC WATER [Concomitant]
     Active Substance: WATER
  2. VALSARTAN. [Concomitant]
     Active Substance: VALSARTAN
  3. METFORMIN ER [Concomitant]
     Active Substance: METFORMIN HYDROCHLORIDE
  4. MYALEPT [Concomitant]
     Active Substance: METRELEPTIN
     Indication: LIPODYSTROPHY ACQUIRED
     Dosage: UNK
     Route: 058
     Dates: start: 20201117
  5. MIRENA [Suspect]
     Active Substance: LEVONORGESTREL
     Indication: CONTRACEPTION
     Dosage: 20 ?G PER DAY CONTINUOUSLY
     Route: 015
     Dates: start: 20200701, end: 20200728

REACTIONS (1)
  - Weight increased [Recovered/Resolved]

NARRATIVE: CASE EVENT DATE: 20200701
